FAERS Safety Report 20332555 (Version 4)
Quarter: 2023Q4

REPORT INFORMATION
  Report Type: Other
  Country: US (occurrence: None)
  Receive Date: 20220113
  Receipt Date: 20231207
  Transmission Date: 20240110
  Serious: Yes (Other)
  Sender: FDA-Public Use
  Company Number: US-ROCHE-2996917

PATIENT
  Age: 64 Year
  Sex: Female

DRUGS (5)
  1. ACTEMRA [Suspect]
     Active Substance: TOCILIZUMAB
     Indication: Giant cell arteritis
     Dosage: INJECT 162MG SUBCUTANEOUSLY EVERY WEEK
     Route: 058
  2. ACTEMRA [Suspect]
     Active Substance: TOCILIZUMAB
  3. ACTEMRA [Suspect]
     Active Substance: TOCILIZUMAB
     Indication: Polymyalgia rheumatica
  4. ACTEMRA [Suspect]
     Active Substance: TOCILIZUMAB
  5. PREDNISONE [Concomitant]
     Active Substance: PREDNISONE

REACTIONS (11)
  - Angioedema [Unknown]
  - Condition aggravated [Unknown]
  - Alopecia [Unknown]
  - Myalgia [Unknown]
  - Tinnitus [Unknown]
  - Ill-defined disorder [Unknown]
  - Fatigue [Unknown]
  - Pain in jaw [Unknown]
  - Rotator cuff syndrome [Unknown]
  - Headache [Unknown]
  - Neck pain [Unknown]
